FAERS Safety Report 14911842 (Version 1)
Quarter: 2018Q2

REPORT INFORMATION
  Report Type: Spontaneous
  Country: US (occurrence: US)
  Receive Date: 20180518
  Receipt Date: 20180518
  Transmission Date: 20180711
  Serious: No
  Sender: FDA-Public Use
  Company Number: US-ASTRAZENECA-2018SE53198

PATIENT
  Age: 22205 Day
  Sex: Female
  Weight: 154.2 kg

DRUGS (7)
  1. BYETTA [Suspect]
     Active Substance: EXENATIDE
     Indication: DIABETES MELLITUS
     Route: 058
  2. OXYGEN. [Concomitant]
     Active Substance: OXYGEN
     Dosage: AT NIGHT
  3. GABAPENTIN. [Concomitant]
     Active Substance: GABAPENTIN
  4. NOVOLOG [Concomitant]
     Active Substance: INSULIN ASPART
     Indication: DIABETES MELLITUS
     Dosage: AS REQUIRED
     Route: 058
  5. BYETTA [Suspect]
     Active Substance: EXENATIDE
     Indication: DIABETES MELLITUS
     Route: 058
  6. BYETTA [Suspect]
     Active Substance: EXENATIDE
     Indication: DIABETES MELLITUS
     Route: 058
     Dates: start: 20180313
  7. TOUJEO [Concomitant]
     Active Substance: INSULIN GLARGINE
     Indication: DIABETES MELLITUS
     Route: 058

REACTIONS (6)
  - Fatigue [Unknown]
  - Thrombosis [Unknown]
  - Blood glucose fluctuation [Unknown]
  - Oedema [Unknown]
  - Oropharyngeal pain [Unknown]
  - Drug ineffective [Recovering/Resolving]

NARRATIVE: CASE EVENT DATE: 20180418
